FAERS Safety Report 8766660 (Version 1)
Quarter: 2012Q4

REPORT INFORMATION
  Report Type: 
  Country: US (occurrence: US)
  Receive Date: 20120904
  Receipt Date: 20120904
  Transmission Date: 20130627
  Serious: No
  Sender: FDA-Public Use
  Company Number: US-BAYER-2012-077808

PATIENT
  Age: 49 Year
  Sex: Male

DRUGS (13)
  1. STAXYN (FDT/ODT) [Suspect]
     Indication: ERECTILE DYSFUNCTION
     Dosage: 10 mg, UNK
     Route: 048
     Dates: start: 20120728
  2. STAXYN (FDT/ODT) [Suspect]
     Indication: ERECTILE DYSFUNCTION
  3. DILTIAZEM [Concomitant]
  4. METOPROLOL [Concomitant]
  5. OMEGA 3 [Concomitant]
  6. VITAMINS [Concomitant]
  7. GLUCOSAMINE [Concomitant]
  8. B12 [Concomitant]
  9. VITAMIN D3 [Concomitant]
  10. LIPITOR [Concomitant]
  11. ALLOPURINOL [Concomitant]
  12. HYDROCHLOROTHIAZIDE [Concomitant]
  13. LEXAPRO [Concomitant]
     Dosage: UNK

REACTIONS (1)
  - Erectile dysfunction [None]
